FAERS Safety Report 8383703-6 (Version None)
Quarter: 2012Q2

REPORT INFORMATION
  Report Type: 
  Country: None (occurrence: None)
  Receive Date: 20120524
  Receipt Date: 20120515
  Transmission Date: 20120825
  Serious: Yes (Other)
  Sender: FDA-Public Use
  Company Number: US-BAYER-2012-048753

PATIENT
  Age: 26 Year
  Sex: Male
  Weight: 136 kg

DRUGS (1)
  1. NAPROXEN SODIUM [Suspect]
     Indication: HEADACHE
     Dosage: BOTTLE COUNT 100S
     Dates: start: 20120515

REACTIONS (1)
  - HYPERTENSION [None]
